FAERS Safety Report 18638560 (Version 1)
Quarter: 2020Q4

REPORT INFORMATION
  Report Type: Spontaneous
  Country: US (occurrence: US)
  Receive Date: 20201218
  Receipt Date: 20201218
  Transmission Date: 20210114
  Serious: Yes (Other)
  Sender: FDA-Public Use
  Company Number: US-PFIZER INC-2020496731

PATIENT
  Age: 65 Year
  Sex: Female
  Weight: 72.56 kg

DRUGS (25)
  1. TADALAFIL. [Suspect]
     Active Substance: TADALAFIL
     Dosage: UNK
     Dates: end: 2020
  2. KLOR-CON M20 [Concomitant]
     Active Substance: POTASSIUM CHLORIDE
     Dosage: UNK
  3. REVATIO [Concomitant]
     Active Substance: SILDENAFIL CITRATE
     Dosage: UNK
  4. TYVASO [Suspect]
     Active Substance: TREPROSTINIL
     Dosage: UNK
     Route: 055
  5. TYVASO [Suspect]
     Active Substance: TREPROSTINIL
     Dosage: 18 UG (MICROGRAM), QID (FOUR TIMES A DAY)
     Route: 055
     Dates: start: 2020, end: 202007
  6. AMBRISENTAN [Suspect]
     Active Substance: AMBRISENTAN
     Dosage: UNK
  7. IRON [Concomitant]
     Active Substance: IRON
     Dosage: UNK
  8. TYVASO [Suspect]
     Active Substance: TREPROSTINIL
     Dosage: UNK UNK, 4X/DAY (18-54 UG (3-9 BREATHS), QID, INHALATION)
     Route: 055
     Dates: start: 202004
  9. ASPIRIN EC [Concomitant]
     Active Substance: ASPIRIN
     Dosage: 81 MG
  10. FERROUS SULFATE. [Concomitant]
     Active Substance: FERROUS SULFATE
     Dosage: 65 MG
  11. CRESTOR [Concomitant]
     Active Substance: ROSUVASTATIN CALCIUM
     Dosage: 10 MG
  12. COREG [Concomitant]
     Active Substance: CARVEDILOL
     Dosage: 25 MG
  13. LEVEMIR [Concomitant]
     Active Substance: INSULIN DETEMIR
     Dosage: UNK
  14. ZESTRIL [Concomitant]
     Active Substance: LISINOPRIL
     Dosage: 20 MG
  15. TYVASO [Suspect]
     Active Substance: TREPROSTINIL
     Indication: PULMONARY ARTERIAL HYPERTENSION
     Dosage: 18 UG, 3X/DAY (18 UG (3 BREATHS), THREE TIMES DAY)
     Route: 055
     Dates: start: 20200421
  16. TYVASO [Suspect]
     Active Substance: TREPROSTINIL
     Dosage: UNK
     Route: 055
  17. TYVASO [Suspect]
     Active Substance: TREPROSTINIL
     Dosage: 12 UG (2 BREATHS))
     Route: 055
     Dates: start: 20200426
  18. TYVASO [Suspect]
     Active Substance: TREPROSTINIL
     Dosage: 6 UG, 1X/DAY (6 UG (1 BREATH), ONE TIME A DAY (QD))
     Route: 055
     Dates: start: 2020
  19. DEMADEX [Concomitant]
     Active Substance: TORSEMIDE
     Dosage: 20 MG (TORSEMIDE ONCE DAILY, 5 TO 7 DAYS WEEKLY)
  20. ADCIRCA [Concomitant]
     Active Substance: TADALAFIL
     Dosage: UNK
  21. SILDENAFIL CITRATE. [Suspect]
     Active Substance: SILDENAFIL CITRATE
     Dosage: UNK
  22. SILDENAFIL CITRATE. [Suspect]
     Active Substance: SILDENAFIL CITRATE
     Dosage: 10 MG (HALF DOSE)
     Dates: start: 202009, end: 2020
  23. PRINIVIL [Concomitant]
     Active Substance: LISINOPRIL
     Dosage: 20 MG
  24. TYVASO [Suspect]
     Active Substance: TREPROSTINIL
     Dosage: 18 UG (18 UG  (TRIED IN THE AM (3 BREATHS))
     Route: 055
     Dates: start: 20200425
  25. TYVASO [Suspect]
     Active Substance: TREPROSTINIL
     Dosage: UNK
     Route: 055

REACTIONS (23)
  - Dyspnoea [Not Recovered/Not Resolved]
  - Chest pain [Unknown]
  - Vision blurred [Unknown]
  - Jugular vein distension [Unknown]
  - Throat irritation [Recovering/Resolving]
  - Diarrhoea [Unknown]
  - Fatigue [Recovering/Resolving]
  - Abdominal distension [Recovering/Resolving]
  - Seasonal allergy [Unknown]
  - Off label use [Unknown]
  - Dry mouth [Unknown]
  - Insomnia [Unknown]
  - Oropharyngeal discomfort [Not Recovered/Not Resolved]
  - Dysphonia [Unknown]
  - Ascites [Unknown]
  - Eye pain [Unknown]
  - Drug intolerance [Unknown]
  - Respiratory disorder [Unknown]
  - Feeling abnormal [Unknown]
  - Oropharyngeal pain [Unknown]
  - Headache [Unknown]
  - Nasal discomfort [Recovering/Resolving]
  - Oedema peripheral [Recovering/Resolving]

NARRATIVE: CASE EVENT DATE: 2020
